FAERS Safety Report 8009461-2 (Version None)
Quarter: 2011Q4

REPORT INFORMATION
  Report Type: 
  Country: None (occurrence: None)
  Receive Date: 20111227
  Receipt Date: 20111216
  Transmission Date: 20120403
  Serious: Yes (Death)
  Sender: FDA-Public Use
  Company Number: IE-AMGEN-IRLSP2011067362

PATIENT
  Age: 79 Year
  Sex: Female

DRUGS (5)
  1. FUROSEMIDE [Concomitant]
  2. CALCIUM CARBONATE [Concomitant]
  3. ARANESP [Suspect]
     Indication: RENAL FAILURE CHRONIC
     Dosage: 40 MUG, QMO
     Route: 058
     Dates: start: 20100310, end: 20111121
  4. LIPITOR [Concomitant]
  5. TOLTERODINE TARTRATE [Concomitant]

REACTIONS (1)
  - DEATH [None]
